FAERS Safety Report 12350108 (Version 1)
Quarter: 2016Q2

REPORT INFORMATION
  Report Type: Spontaneous
  Country: US (occurrence: US)
  Receive Date: 20160510
  Receipt Date: 20160510
  Transmission Date: 20160815
  Serious: No
  Sender: FDA-Public Use
  Company Number: US-BAUSCH-BL-2016-011060

PATIENT
  Age: 70 Year
  Sex: Male

DRUGS (7)
  1. BRIMONIDINE [Suspect]
     Active Substance: BRIMONIDINE TARTRATE
     Indication: EXFOLIATION GLAUCOMA
     Route: 065
  2. ACETAZOLAMIDE. [Suspect]
     Active Substance: ACETAZOLAMIDE
     Indication: EXFOLIATION GLAUCOMA
     Route: 048
  3. 5-FLUOROURACIL [Suspect]
     Active Substance: FLUOROURACIL
     Indication: POSTOPERATIVE CARE
     Route: 065
  4. ISTALOL [Suspect]
     Active Substance: TIMOLOL MALEATE
     Indication: EXFOLIATION GLAUCOMA
     Route: 065
  5. LATANOPROST. [Suspect]
     Active Substance: LATANOPROST
     Indication: EXFOLIATION GLAUCOMA
     Route: 065
  6. LOTEMAX [Suspect]
     Active Substance: LOTEPREDNOL ETABONATE
     Indication: EXFOLIATION GLAUCOMA
     Route: 061
  7. BETIMOL [Suspect]
     Active Substance: TIMOLOL
     Indication: EXFOLIATION GLAUCOMA
     Route: 065

REACTIONS (15)
  - Keratoplasty [Unknown]
  - Corneal oedema [Unknown]
  - Corneal dystrophy [Unknown]
  - Anterior chamber cell [Unknown]
  - Corneal thickening [Unknown]
  - Corneal endothelial cell loss [Unknown]
  - Photophobia [Unknown]
  - Intraocular pressure increased [Recovered/Resolved]
  - Visual acuity tests abnormal [Recovering/Resolving]
  - Drug intolerance [Unknown]
  - Vision blurred [Unknown]
  - Eye irritation [Unknown]
  - Lens extraction [Unknown]
  - Corneal pigmentation [Unknown]
  - Corneal scar [Unknown]
